FAERS Safety Report 11748261 (Version 2)
Quarter: 2016Q2

REPORT INFORMATION
  Report Type: Spontaneous
  Country: US (occurrence: US)
  Receive Date: 20151117
  Receipt Date: 20160620
  Transmission Date: 20160815
  Serious: No
  Sender: FDA-Public Use
  Company Number: US-ASTRAZENECA-2015SF08697

PATIENT
  Age: 715 Month
  Sex: Female
  Weight: 76.7 kg

DRUGS (4)
  1. TUDORZA PRESSAIR [Suspect]
     Active Substance: ACLIDINIUM BROMIDE
     Indication: CHRONIC OBSTRUCTIVE PULMONARY DISEASE
     Dosage: ONE INHALATION TWICE A DAY, MORNING AND NIGHT.
     Route: 055
     Dates: start: 201511
  2. NOSE SPRAY [Concomitant]
     Indication: HYPERSENSITIVITY
     Dosage: AT BEDTIME
  3. PILL FOR ALLERGY [Concomitant]
     Indication: HYPERSENSITIVITY
     Dosage: AT BEDTIME
  4. TUDORZA PRESSAIR [Suspect]
     Active Substance: ACLIDINIUM BROMIDE
     Indication: CHRONIC OBSTRUCTIVE PULMONARY DISEASE
     Dosage: ONE INHALATION TWICE A DAY
     Route: 055
     Dates: start: 201508

REACTIONS (5)
  - Drug dose omission [Unknown]
  - Stress [Unknown]
  - Dyspnoea [Unknown]
  - Dysgeusia [Unknown]
  - Product quality issue [Unknown]

NARRATIVE: CASE EVENT DATE: 201508
